FAERS Safety Report 7889662-4 (Version None)
Quarter: 2011Q4

REPORT INFORMATION
  Report Type: 
  Country: None (occurrence: None)
  Receive Date: 20111103
  Receipt Date: 20111027
  Transmission Date: 20120403
  Serious: Yes (Hospitalization)
  Sender: FDA-Public Use
  Company Number: US-PFIZER INC-2011248005

PATIENT
  Sex: Female

DRUGS (2)
  1. XALKORI [Suspect]
     Indication: LUNG NEOPLASM MALIGNANT
     Dosage: 250 MG, UNK
     Dates: start: 20111014
  2. FENTANYL [Interacting]
     Indication: PAIN

REACTIONS (8)
  - VISION BLURRED [None]
  - NAUSEA [None]
  - VOMITING [None]
  - PHOTOPHOBIA [None]
  - DRUG INTERACTION [None]
  - PHOTOPSIA [None]
  - CONSTIPATION [None]
  - FATIGUE [None]
